FAERS Safety Report 16394320 (Version 2)
Quarter: 2019Q2

REPORT INFORMATION
  Report Type: Spontaneous
  Country: GB (occurrence: GB)
  Receive Date: 20190605
  Receipt Date: 20190605
  Transmission Date: 20190711
  Serious: Yes (Other)
  Sender: FDA-Public Use
  Company Number: GB-PFIZER INC-2019227764

PATIENT
  Age: 71 Year
  Sex: Male

DRUGS (5)
  1. AMIODARONE HCL [Suspect]
     Active Substance: AMIODARONE HYDROCHLORIDE
     Indication: ATRIAL FIBRILLATION
     Dosage: 200 MG, THREE TIMES DAILY
  2. BISOPROLOL [Concomitant]
     Active Substance: BISOPROLOL
     Dosage: 5 MG, ONCE DAILY
  3. ATORVASTATIN [Concomitant]
     Active Substance: ATORVASTATIN
     Dosage: 10 MG, ONCE DAILY
  4. AMIODARONE HCL [Suspect]
     Active Substance: AMIODARONE HYDROCHLORIDE
     Dosage: 200 MG, DAILY OVER THREE WEEKS
  5. WARFARIN [Concomitant]
     Active Substance: WARFARIN
     Indication: GENERAL ANAESTHESIA
     Dosage: UNK
     Dates: start: 201707

REACTIONS (3)
  - Pulmonary haemorrhage [Recovered/Resolved]
  - Pulmonary toxicity [Recovered/Resolved]
  - Hypoxia [Recovered/Resolved]
